FAERS Safety Report 9012187 (Version 2)
Quarter: 2013Q2

REPORT INFORMATION
  Report Type: Report from Study
  Country: JP (occurrence: JP)
  Receive Date: 20130114
  Receipt Date: 20130404
  Transmission Date: 20140414
  Serious: Yes (Other)
  Sender: FDA-Public Use
  Company Number: JP-009507513-1301JPN003099

PATIENT
  Age: 55 Year
  Sex: Female
  Weight: 82 kg

DRUGS (15)
  1. PEGINTRON [Suspect]
     Indication: CHRONIC HEPATITIS C
     Dosage: 1.5 MICROGRAM PER KILOGRAM, QW
     Route: 058
     Dates: start: 20120831, end: 20120831
  2. PEGINTRON [Suspect]
     Dosage: 80 MCG/BODY ON 07-SEP, 14-SEP, 20-SEP
     Route: 058
     Dates: start: 20120907, end: 20120920
  3. PEGINTRON [Suspect]
     Dosage: 40 MCG/BODY, QW
     Route: 058
     Dates: start: 20120927, end: 20120927
  4. PEGINTRON [Suspect]
     Dosage: 80 MCG/BODY, QW
     Route: 058
     Dates: start: 20121004, end: 20121205
  5. PEGINTRON [Suspect]
     Dosage: 50 MCG/BODY, QW
     Route: 058
     Dates: start: 20121206, end: 20130109
  6. PEGINTRON [Suspect]
     Dosage: 60 MCG/BODY, QW
     Route: 058
     Dates: start: 20130110, end: 20130207
  7. REBETOL [Suspect]
     Indication: CHRONIC HEPATITIS C
     Dosage: 1000 MG, QD
     Route: 048
     Dates: start: 20120831, end: 20121003
  8. REBETOL [Suspect]
     Dosage: 800 MG, QD
     Dates: start: 20121004, end: 20121105
  9. REBETOL [Suspect]
     Dosage: 800 MG, QD
     Route: 048
     Dates: start: 20121108, end: 20130214
  10. TELAVIC [Suspect]
     Indication: CHRONIC HEPATITIS C
     Dosage: 2250 MG, QD
     Route: 048
     Dates: start: 20120831, end: 20120902
  11. TELAVIC [Suspect]
     Dosage: 1500 MG, QD
     Route: 048
     Dates: start: 20120903, end: 20121105
  12. TELAVIC [Suspect]
     Dosage: 1500 MG, QD
     Route: 048
     Dates: start: 20121108, end: 20121129
  13. CALONAL [Concomitant]
     Indication: PROPHYLAXIS
     Dosage: 400 MG/DAY, AS NEEDED
     Route: 048
     Dates: start: 20120901, end: 20121105
  14. CRAVIT [Concomitant]
     Indication: URINARY TRACT INFECTION
     Dosage: 500 MG, QD
     Route: 048
     Dates: start: 20121004, end: 20121010
  15. URSO [Concomitant]
     Indication: CHRONIC HEPATITIS C
     Dosage: 300 MG, QD
     Route: 048
     Dates: end: 20130123

REACTIONS (1)
  - Hepatic function abnormal [Not Recovered/Not Resolved]
